FAERS Safety Report 4730133-1 (Version None)
Quarter: 2005Q3

REPORT INFORMATION
  Report Type: 
  Country: None (occurrence: None)
  Receive Date: 20050728
  Receipt Date: 20050714
  Transmission Date: 20060218
  Serious: Yes (Other)
  Sender: FDA-Public Use
  Company Number: 216114

PATIENT
  Sex: Female

DRUGS (3)
  1. MABTHERA         (RITUXIMAB) [Suspect]
     Dates: end: 20050201
  2. VINCRISTINE [Concomitant]
  3. BLEOMYCIN [Concomitant]

REACTIONS (3)
  - DYSGEUSIA [None]
  - HEMIPARESIS [None]
  - PARAESTHESIA [None]
